FAERS Safety Report 20676700 (Version 1)
Quarter: 2022Q2

REPORT INFORMATION
  Report Type: Spontaneous
  Country: CA (occurrence: CA)
  Receive Date: 20220406
  Receipt Date: 20220406
  Transmission Date: 20220721
  Serious: Yes (Other)
  Sender: FDA-Public Use
  Company Number: CA-TEVA-2022-CA-2023291

PATIENT
  Age: 30 Year
  Sex: Female
  Weight: 98 kg

DRUGS (5)
  1. CLINDAMYCIN PHOSPHATE [Suspect]
     Active Substance: CLINDAMYCIN PHOSPHATE
     Indication: Tonsillitis
     Dosage: 600 MILLIGRAM DAILY;
     Route: 048
  2. LAMOTRIGINE [Concomitant]
     Active Substance: LAMOTRIGINE
  3. PANTOPRAZOLE [Concomitant]
     Active Substance: PANTOPRAZOLE
  4. PREGABALIN [Concomitant]
     Active Substance: PREGABALIN
  5. VYVANSE [Concomitant]
     Active Substance: LISDEXAMFETAMINE DIMESYLATE

REACTIONS (5)
  - Abdominal pain upper [Recovering/Resolving]
  - Hepatic steatosis [Recovering/Resolving]
  - Nausea [Recovering/Resolving]
  - Splenomegaly [Recovering/Resolving]
  - Hepatic enzyme increased [Recovering/Resolving]
